FAERS Safety Report 5362248-1 (Version None)
Quarter: 2007Q2

REPORT INFORMATION
  Report Type: 
  Country: None (occurrence: None)
  Receive Date: 20070619
  Receipt Date: 20070611
  Transmission Date: 20071010
  Serious: Yes (Other)
  Sender: FDA-Public Use
  Company Number: US-BAYER-200710949BWH

PATIENT
  Age: 25 Year
  Sex: Male
  Weight: 77 kg

DRUGS (3)
  1. CIPRO [Suspect]
     Indication: GASTROINTESTINAL INFECTION
     Dosage: TOTAL DAILY DOSE: 1000 MG  UNIT DOSE: 500 MG
     Route: 048
  2. ACIPHEX [Concomitant]
  3. SYNTHROID [Concomitant]

REACTIONS (15)
  - ARTHRALGIA [None]
  - CENTRAL NERVOUS SYSTEM STIMULATION [None]
  - GASTROINTESTINAL DISORDER [None]
  - HALLUCINATION [None]
  - HYPOAESTHESIA [None]
  - NEUROPATHY [None]
  - PANIC ATTACK [None]
  - PHOTOSENSITIVITY REACTION [None]
  - RASH [None]
  - TENDON PAIN [None]
  - TENDON RUPTURE [None]
  - TINNITUS [None]
  - TREMOR [None]
  - VISION BLURRED [None]
  - VISUAL ACUITY REDUCED [None]
